FAERS Safety Report 21315692 (Version 1)
Quarter: 2022Q3

REPORT INFORMATION
  Report Type: Spontaneous
  Country: US (occurrence: US)
  Receive Date: 20220909
  Receipt Date: 20220909
  Transmission Date: 20221027
  Serious: No
  Sender: FDA-Public Use
  Company Number: US-ASCENDIS PHARMA-2022US000731

PATIENT

DRUGS (1)
  1. SKYTROFA [Suspect]
     Active Substance: LONAPEGSOMATROPIN-TCGD
     Indication: Product used for unknown indication
     Dosage: UNK, WEEKLY
     Route: 065
     Dates: start: 20220717

REACTIONS (7)
  - Dyspnoea [Unknown]
  - Rash [Not Recovered/Not Resolved]
  - Dermatitis [Unknown]
  - Chapped lips [Unknown]
  - Lip swelling [Unknown]
  - Eyelid ptosis [Unknown]
  - Fatigue [Unknown]

NARRATIVE: CASE EVENT DATE: 20220717
